FAERS Safety Report 6641520-9 (Version None)
Quarter: 2010Q1

REPORT INFORMATION
  Report Type: 
  Country: None (occurrence: None)
  Receive Date: 20100317
  Receipt Date: 20100317
  Transmission Date: 20100710
  Serious: Yes (Hospitalization)
  Sender: FDA-Public Use
  Company Number: None

PATIENT
  Age: 58 Year
  Sex: Female

DRUGS (1)
  1. VANCOMYCIN HCL [Suspect]
     Indication: INFECTION
     Dosage: 1500 MG Q12HOURS IV
     Route: 042
     Dates: start: 20091130, end: 20091208

REACTIONS (1)
  - MEDICATION ERROR [None]
